FAERS Safety Report 4339603-1 (Version None)
Quarter: 2004Q2

REPORT INFORMATION
  Report Type: 
  Country: None (occurrence: None)
  Receive Date: 20040415
  Receipt Date: 20030725
  Transmission Date: 20050107
  Serious: Yes (Hospitalization, Other)
  Sender: FDA-Public Use
  Company Number: DE-MERCK-0308DEU00029M

PATIENT
  Age: 31 Year
  Sex: Female

DRUGS (14)
  1. ALBUTEROL SULFATE [Concomitant]
     Route: 065
  2. FOSAMAX [Suspect]
     Indication: OSTEOPOROSIS
     Route: 048
     Dates: start: 19990101, end: 20030701
  3. DEXAMETHASONE [Suspect]
     Indication: ASTHMA
     Route: 048
  4. FLUTICASONE PROPIONATE [Concomitant]
     Route: 065
  5. FORMOTEROL FUMARATE [Concomitant]
     Route: 055
  6. FUROSEMIDE [Concomitant]
     Route: 065
  7. GLOBULIN, IMMUNE [Concomitant]
     Route: 065
  8. INTERFERON (UNSPECIFIED) [Concomitant]
     Route: 065
  9. IPRATROPIUM BROMIDE [Concomitant]
     Route: 065
  10. MONTELUKAST SODIUM [Concomitant]
     Route: 048
  11. RIBAVIRIN [Concomitant]
     Route: 065
  12. TERBUTALINE SULFATE [Concomitant]
     Route: 065
  13. THEOPHYLLINE [Concomitant]
     Route: 065
  14. TORSEMIDE [Concomitant]
     Route: 065

REACTIONS (4)
  - ADVERSE EVENT [None]
  - DRUG EXPOSURE DURING PREGNANCY [None]
  - GESTATIONAL DIABETES [None]
  - SELF-MEDICATION [None]
